FAERS Safety Report 9681761 (Version 1)
Quarter: 2013Q4

REPORT INFORMATION
  Report Type: Spontaneous
  Country: US (occurrence: US)
  Receive Date: 20131111
  Receipt Date: 20131111
  Transmission Date: 20140711
  Serious: Yes (Other)
  Sender: FDA-Public Use
  Company Number: US-BRISTOL-MYERS SQUIBB COMPANY-19752575

PATIENT
  Sex: Female

DRUGS (2)
  1. COUMADIN [Suspect]
     Indication: PULMONARY EMBOLISM
  2. LOVENOX [Suspect]
     Indication: PULMONARY EMBOLISM

REACTIONS (5)
  - Eye disorder [Unknown]
  - Arthropathy [Unknown]
  - Venous thrombosis [Unknown]
  - Myocardial infarction [Unknown]
  - Diffuse alopecia [Unknown]
